FAERS Safety Report 18295317 (Version 1)
Quarter: 2020Q3

REPORT INFORMATION
  Report Type: Spontaneous
  Country: US (occurrence: US)
  Receive Date: 20200922
  Receipt Date: 20200922
  Transmission Date: 20201103
  Serious: No
  Sender: FDA-Public Use
  Company Number: US-TEVA-2020-US-1831498

PATIENT
  Sex: Female

DRUGS (1)
  1. AUSTEDO [Suspect]
     Active Substance: DEUTETRABENAZINE
     Indication: HUNTINGTON^S DISEASE
     Dosage: 30 MILLIGRAM DAILY; 6 MG TAKE 1 TABLET TWICE A DAY, TAKE ALONG WITH 9 MG TABLET FOR A TOTAL DOSE OF
     Route: 048
     Dates: start: 2019

REACTIONS (2)
  - Weight decreased [Not Recovered/Not Resolved]
  - Product dose omission issue [Unknown]
